FAERS Safety Report 13913321 (Version 1)
Quarter: 2017Q3

REPORT INFORMATION
  Report Type: Spontaneous
  Country: US (occurrence: US)
  Receive Date: 20170828
  Receipt Date: 20170828
  Transmission Date: 20171127
  Serious: No
  Sender: FDA-Public Use
  Company Number: US-ROCHE-1127311

PATIENT
  Sex: Female

DRUGS (4)
  1. NUTROPIN [Suspect]
     Active Substance: SOMATROPIN
     Indication: BODY HEIGHT BELOW NORMAL
     Dosage: 0.28/MG/KG/WEEK
     Route: 065
  2. PROVENTIL [Concomitant]
     Active Substance: ALBUTEROL
     Dosage: 2 PUFFS, 3-4 TIMES A DAY
     Route: 065
  3. NUTROPIN [Suspect]
     Active Substance: SOMATROPIN
     Indication: GROWTH HORMONE DEFICIENCY
     Dosage: 11.7 MG/WEEK
     Route: 065
  4. ZITHROMAX [Concomitant]
     Active Substance: AZITHROMYCIN DIHYDRATE
     Dosage: 500/250 DAILY FOR 4 DAYS
     Route: 065

REACTIONS (4)
  - Wheezing [Unknown]
  - Pyrexia [Unknown]
  - Cough [Unknown]
  - Malaise [Unknown]
